FAERS Safety Report 6743492-5 (Version None)
Quarter: 2010Q2

REPORT INFORMATION
  Report Type: 
  Country: None (occurrence: None)
  Receive Date: 20100527
  Receipt Date: 20100521
  Transmission Date: 20101027
  Serious: Yes (Hospitalization)
  Sender: FDA-Public Use
  Company Number: IT-SANOFI-AVENTIS-2010SA028906

PATIENT
  Age: 70 Year
  Sex: Female

DRUGS (8)
  1. FUROSEMIDE [Suspect]
     Route: 048
     Dates: start: 20090101, end: 20100316
  2. LOSARTAN POTASSIUM [Suspect]
     Route: 048
     Dates: start: 20090101, end: 20100315
  3. AMIODARONE [Suspect]
     Dosage: DOSE:1 UNIT(S)
     Route: 048
     Dates: start: 20090101, end: 20100317
  4. OMEPRAZOLE [Concomitant]
     Indication: DRUG USE FOR UNKNOWN INDICATION
     Route: 048
  5. ACETYLSALICYLIC ACID [Concomitant]
     Indication: DRUG USE FOR UNKNOWN INDICATION
     Route: 048
  6. COUMADIN [Concomitant]
     Indication: DRUG USE FOR UNKNOWN INDICATION
     Route: 065
  7. SPIRIVA [Concomitant]
     Indication: DRUG USE FOR UNKNOWN INDICATION
     Route: 065
  8. FLUTICASONE PROPIONATE/SALMETEROL [Concomitant]
     Indication: DRUG USE FOR UNKNOWN INDICATION
     Route: 065

REACTIONS (1)
  - SYNCOPE [None]
